FAERS Safety Report 10621611 (Version 1)
Quarter: 2014Q4

REPORT INFORMATION
  Report Type: Spontaneous
  Country: US (occurrence: None)
  Receive Date: 20141126
  Receipt Date: 20141126
  Transmission Date: 20150529
  Serious: Yes (Other)
  Sender: FDA-Public Use
  Company Number: None

PATIENT
  Age: 37 Year
  Sex: Female
  Weight: 52.62 kg

DRUGS (1)
  1. FLAGYL [Suspect]
     Active Substance: METRONIDAZOLE\METRONIDAZOLE HYDROCHLORIDE
     Indication: BACTERIAL INFECTION
     Route: 048
     Dates: start: 20141110, end: 20141111

REACTIONS (14)
  - Hypoaesthesia [None]
  - Anxiety [None]
  - Infection [None]
  - Nausea [None]
  - Lethargy [None]
  - Confusional state [None]
  - Bacterial infection [None]
  - Insomnia [None]
  - Paraesthesia [None]
  - Musculoskeletal stiffness [None]
  - Dizziness [None]
  - Formication [None]
  - Cerebrovascular accident [None]
  - Muscle twitching [None]

NARRATIVE: CASE EVENT DATE: 20141114
